FAERS Safety Report 14757542 (Version 7)
Quarter: 2018Q4

REPORT INFORMATION
  Report Type: Other
  Country: DK (occurrence: DK)
  Receive Date: 20180413
  Receipt Date: 20181205
  Transmission Date: 20190204
  Serious: Yes (Death, Hospitalization, Other)
  Sender: FDA-Public Use
  Company Number: DK-ASPEN-GLO2018DK003447

PATIENT
  Age: 69 Year
  Sex: Male

DRUGS (28)
  1. RITUXIMAB. [Suspect]
     Active Substance: RITUXIMAB
     Indication: LYMPHOMA
     Dosage: EVERY 3 MONTHS
     Route: 065
  2. CYCLOPHOSPHAMIDE. [Suspect]
     Active Substance: CYCLOPHOSPHAMIDE
     Dosage: UNK
     Route: 048
     Dates: start: 2004, end: 2009
  3. PREDNISOLONE. [Suspect]
     Active Substance: PREDNISOLONE
     Indication: B-CELL LYMPHOMA
     Dosage: RECEIVED TWO TREATMENTS
     Route: 065
  4. PREDNISOLONE. [Suspect]
     Active Substance: PREDNISOLONE
     Dosage: UNK
     Route: 065
  5. PREDNISONE. [Suspect]
     Active Substance: PREDNISONE
     Indication: B-CELL LYMPHOMA
     Route: 065
  6. VORICONAZOLE. [Suspect]
     Active Substance: VORICONAZOLE
     Indication: CEREBRAL ASPERGILLOSIS
     Route: 065
  7. CHLORAMBUCIL [Suspect]
     Active Substance: CHLORAMBUCIL
     Indication: B-CELL LYMPHOMA
  8. PREDNISOLONE. [Suspect]
     Active Substance: PREDNISOLONE
     Dosage: UNK
     Route: 048
  9. VINCRISTINE [Suspect]
     Active Substance: VINCRISTINE
     Dosage: UNK
     Route: 048
  10. RITUXIMAB. [Suspect]
     Active Substance: RITUXIMAB
     Indication: B-CELL LYMPHOMA
     Dosage: RECEIVED TWO TREATMENTS
     Route: 065
     Dates: start: 201008
  11. RITUXIMAB. [Suspect]
     Active Substance: RITUXIMAB
     Dosage: TREATED WITH SIX SERIES
     Route: 065
  12. CYCLOPHOSPHAMIDE. [Suspect]
     Active Substance: CYCLOPHOSPHAMIDE
     Dosage: RECEIVED SIX SERIES
     Route: 065
  13. VORICONAZOLE. [Suspect]
     Active Substance: VORICONAZOLE
     Indication: ASPERGILLUS INFECTION
  14. DAPSONE. [Concomitant]
     Active Substance: DAPSONE
     Indication: ANTIFUNGAL PROPHYLAXIS
     Dosage: 100 MG, QD
     Route: 048
     Dates: start: 2012
  15. DOXORUBICIN [Suspect]
     Active Substance: DOXORUBICIN
     Indication: LYMPHOMA
     Dosage: TREATED WITH SIX SERIES
     Route: 065
  16. CHLORAMBUCIL [Suspect]
     Active Substance: CHLORAMBUCIL
     Indication: LYMPHOMA
     Dosage: UNK
     Route: 048
     Dates: start: 2004, end: 2009
  17. CYCLOPHOSPHAMIDE. [Suspect]
     Active Substance: CYCLOPHOSPHAMIDE
     Indication: LYMPHOMA
     Dosage: RECEIVED TWO TREATMENTS
     Route: 065
  18. FLUDARABINE [Concomitant]
     Active Substance: FLUDARABINE PHOSPHATE
     Indication: LYMPHOMA
     Route: 048
  19. RITUXIMAB. [Suspect]
     Active Substance: RITUXIMAB
     Dosage: UNK
     Route: 048
     Dates: start: 2004, end: 2009
  20. PREDNISOLONE. [Suspect]
     Active Substance: PREDNISOLONE
     Indication: LYMPHOMA
     Dosage: RECEIVED SIX SERIES
     Route: 065
  21. PYRIMETHAMINE [Concomitant]
     Active Substance: PYRIMETHAMINE
     Indication: TOXOPLASMOSIS
     Route: 065
  22. RITUXIMAB. [Suspect]
     Active Substance: RITUXIMAB
     Dosage: UNK
     Route: 065
     Dates: end: 201008
  23. CYCLOPHOSPHAMIDE. [Suspect]
     Active Substance: CYCLOPHOSPHAMIDE
     Indication: B-CELL LYMPHOMA
     Dosage: RECEIVED FOR SIX TIMES
     Route: 065
  24. VINCRISTINE [Suspect]
     Active Substance: VINCRISTINE
     Indication: LYMPHOMA
     Dosage: RECEIVED SIX SERIES
     Route: 065
  25. RITUXIMAB. [Suspect]
     Active Substance: RITUXIMAB
     Dosage: RECEIVED FOR SIX TIMES
     Route: 065
  26. VINCRISTINE [Suspect]
     Active Substance: VINCRISTINE
     Indication: B-CELL LYMPHOMA
     Dosage: RECEIVED TWO TREATMENTS
     Route: 065
  27. VINCRISTINE [Suspect]
     Active Substance: VINCRISTINE
     Dosage: UNK
     Route: 065
  28. CLINDAMYCIN. [Concomitant]
     Active Substance: CLINDAMYCIN
     Indication: TOXOPLASMOSIS
     Route: 065

REACTIONS (11)
  - Confusional state [Fatal]
  - Cough [Recovered/Resolved]
  - Drug ineffective [Unknown]
  - Lung infiltration [Recovered/Resolved]
  - Neurological symptom [Fatal]
  - Apraxia [Fatal]
  - Disease progression [Fatal]
  - Aphasia [Fatal]
  - Pneumocystis jirovecii pneumonia [Recovered/Resolved]
  - Pyrexia [Recovered/Resolved]
  - Cerebral aspergillosis [Fatal]

NARRATIVE: CASE EVENT DATE: 201205
